FAERS Safety Report 10593758 (Version 7)
Quarter: 2015Q4

REPORT INFORMATION
  Report Type: Spontaneous
  Country: US (occurrence: US)
  Receive Date: 20141119
  Receipt Date: 20151105
  Transmission Date: 20160304
  Serious: Yes (Hospitalization, Other)
  Sender: FDA-Public Use
  Company Number: US-PFIZER INC-2014317105

PATIENT
  Age: 64 Year
  Sex: Female
  Weight: 111 kg

DRUGS (28)
  1. REVATIO [Suspect]
     Active Substance: SILDENAFIL CITRATE
     Indication: PULMONARY ARTERIAL HYPERTENSION
     Dosage: 40 MG (20MG, TWO TABLETS THREE TIMES DAILY), 3X/DAY
     Route: 048
     Dates: start: 201003
  2. REVATIO [Suspect]
     Active Substance: SILDENAFIL CITRATE
     Dosage: UNK
  3. HYDROCORTISONE. [Concomitant]
     Active Substance: HYDROCORTISONE
     Indication: ECZEMA
     Dosage: 2.5 %, APPLY TO AFFECTED AREAS TWICE A DAY AS NEEDED
  4. COUMADIN [Interacting]
     Active Substance: WARFARIN SODIUM
     Indication: PULMONARY THROMBOSIS
     Dosage: VARIOUS
     Dates: start: 201004
  5. REMODULIN [Concomitant]
     Active Substance: TREPROSTINIL
     Dosage: INJECT 20 NG/KG/MIN INTO THE SKIN CONT,CONC: 5,000,000 NG/ML; DOSING WT: 125KG,RATE 0.030 ML/HR.
     Dates: start: 201007
  6. XANAX [Concomitant]
     Active Substance: ALPRAZOLAM
     Dosage: 0.5 MG, 1 TAB BY MOUTH THREE TIMES A DAY AS NEEDED
     Route: 048
  7. ZOFRAN [Concomitant]
     Active Substance: ONDANSETRON HYDROCHLORIDE
     Indication: VOMITING
  8. CLARITIN-D 12 HOUR [Concomitant]
     Active Substance: LORATADINE\PSEUDOEPHEDRINE SULFATE
     Dosage: UNK, DAILY
     Route: 048
  9. CLARITIN-D 12 HOUR [Concomitant]
     Active Substance: LORATADINE\PSEUDOEPHEDRINE SULFATE
     Dosage: 10-240 MG, 1 BY MOUTH EVERY DAY
     Route: 048
  10. TYLENOL WITH CODEINE [Concomitant]
     Active Substance: ACETAMINOPHEN\CODEINE PHOSPHATE
     Dosage: AS NEEDED
     Route: 048
  11. ZYLOPRIM [Concomitant]
     Active Substance: ALLOPURINOL
     Dosage: 300 MG, 1 BY MOUTH EVERY DAY
     Route: 048
  12. HYDROCORTISONE. [Concomitant]
     Active Substance: HYDROCORTISONE
     Indication: DERMATITIS CONTACT
  13. LIPITOR [Concomitant]
     Active Substance: ATORVASTATIN CALCIUM
     Indication: TYPE V HYPERLIPIDAEMIA
     Dosage: 40 MG, 1 BY MOUTH EVERY DAY (NIGHTLY)
     Route: 048
  14. FERROUS SULFATE [Concomitant]
     Active Substance: FERROUS SULFATE\FERROUS SULFATE, DRIED
     Dosage: 325 (65 FE) MG, 1 TWICE A DAY
     Route: 048
  15. ASPIRIN. [Concomitant]
     Active Substance: ASPIRIN
     Dosage: 81 MG, DAILY (1 EVERY DAY)
     Route: 048
  16. ZOLOFT [Concomitant]
     Active Substance: SERTRALINE HYDROCHLORIDE
     Dosage: 100 MG, 2 BY MOUTH EVERY DAY
     Route: 048
  17. COUMADIN [Interacting]
     Active Substance: WARFARIN SODIUM
     Dosage: SUN/MON/THUES 1 TAB, THUS/ SAT 1MG, WED + FRI 1 TAB AT 2MG
  18. TRIAMCINOLONE ACETONIDE. [Concomitant]
     Active Substance: TRIAMCINOLONE ACETONIDE
     Dosage: UNK, AS NEEDED
  19. NEURONTIN [Concomitant]
     Active Substance: GABAPENTIN
     Dosage: 100 MG, 1 TAB (CAP) BY MOUTH THREE TIMES A DAY
     Route: 048
  20. PANADEINE CO [Concomitant]
     Active Substance: ACETAMINOPHEN\CODEINE PHOSPHATE
     Dosage: 300-30 MG, 1 TAB BY MOUTH THREE TIMES A DAY AS NEEDED
     Route: 048
  21. COUMADIN [Interacting]
     Active Substance: WARFARIN SODIUM
     Indication: PULMONARY ARTERIAL HYPERTENSION
     Dosage: 2 MG, DAILY (AS DIRECTED EVERY AT NIGHT)
     Route: 048
     Dates: start: 201003
  22. TOPROL XL [Concomitant]
     Active Substance: METOPROLOL SUCCINATE
     Dosage: 25 MG 1 BY MOUTH EVERY DAY
     Route: 048
  23. ZOFRAN [Concomitant]
     Active Substance: ONDANSETRON HYDROCHLORIDE
     Indication: NAUSEA
     Dosage: 8 MG, 1 TAB EVERY 8 HOURS AS NEEDED
     Route: 048
  24. REMODULIN [Concomitant]
     Active Substance: TREPROSTINIL
     Dosage: 5 MG/ML, CONTINUOUS
  25. BACTROBAN [Concomitant]
     Active Substance: MUPIROCIN\MUPIROCIN CALCIUM
     Dosage: 2%, APPLY THREE TIMES A DAY AS NEEDED
     Route: 061
  26. LASIX [Concomitant]
     Active Substance: FUROSEMIDE
     Dosage: 20 MG, 1 BY MOUTH EVERY DAY
     Route: 048
  27. WELLBUTRIN SR [Concomitant]
     Active Substance: BUPROPION HYDROCHLORIDE
     Indication: DEPRESSION
     Dosage: 150 MG, 1 TAB BY MOUTH EVERY MORNING
     Route: 048
  28. OXYGEN. [Concomitant]
     Active Substance: OXYGEN
     Dosage: 24/7 AND CPAP, VIA NASAL CANNULA, EQUIPPED FOR LIFE
     Route: 045

REACTIONS (8)
  - Malaise [Recovered/Resolved]
  - Epistaxis [Recovered/Resolved]
  - Drug interaction [Recovered/Resolved]
  - Sinusitis [Recovered/Resolved]
  - Cystitis [Recovered/Resolved]
  - Hypocoagulable state [Recovered/Resolved]
  - Dyspnoea [Recovered/Resolved]
  - Fatigue [Recovered/Resolved]
